FAERS Safety Report 4357465-3 (Version None)
Quarter: 2004Q2

REPORT INFORMATION
  Report Type: 
  Country: None (occurrence: None)
  Receive Date: 20040506
  Receipt Date: 20040324
  Transmission Date: 20050107
  Serious: Yes (Life-Threatening, Hospitalization)
  Sender: FDA-Public Use
  Company Number: 2004-BP-02411RT

PATIENT
  Age: 70 Year
  Sex: Male

DRUGS (1)
  1. TIOTROPIUM INHALATION POWDER (TIOTROPIUM) [Suspect]
     Indication: CHRONIC OBSTRUCTIVE AIRWAYS DISEASE
     Dosage: (1 CAPSULE/DAY) IH
     Route: 055
     Dates: start: 20030402

REACTIONS (1)
  - ACUTE MYOCARDIAL INFARCTION [None]
